FAERS Safety Report 9342170 (Version 1)
Quarter: 2013Q2

REPORT INFORMATION
  Report Type: Spontaneous
  Country: FR (occurrence: FR)
  Receive Date: 20130610
  Receipt Date: 20130610
  Transmission Date: 20140414
  Serious: Yes (Hospitalization)
  Sender: FDA-Public Use
  Company Number: FR-BAUSCH-BL-2013-003353

PATIENT
  Age: 87 Year
  Sex: Female

DRUGS (13)
  1. YELLOX 0.9 MG/ML EYE DROPS, SOLUTION [Suspect]
     Indication: POSTOPERATIVE CARE
     Route: 047
     Dates: start: 20130408, end: 20130422
  2. YELLOX 0.9 MG/ML EYE DROPS, SOLUTION [Suspect]
     Indication: CATARACT OPERATION
  3. INDOCOLLYRE 0.1% COLLYRE [Suspect]
     Indication: POSTOPERATIVE CARE
     Route: 047
     Dates: start: 20130423, end: 20130429
  4. INDOCOLLYRE 0.1% COLLYRE [Suspect]
     Indication: CATARACT OPERATION
  5. EXOCINE [Concomitant]
     Indication: POSTOPERATIVE CARE
     Route: 047
     Dates: start: 20130408, end: 20130422
  6. EXOCINE [Concomitant]
     Indication: CATARACT OPERATION
  7. PREVISCAN [Concomitant]
     Indication: PRODUCT USED FOR UNKNOWN INDICATION
     Route: 048
     Dates: start: 201301
  8. HEMIGOXINE [Concomitant]
     Indication: PRODUCT USED FOR UNKNOWN INDICATION
     Route: 048
     Dates: start: 201301, end: 20130424
  9. HEMIGOXINE [Concomitant]
     Route: 048
     Dates: start: 20130426
  10. FUROSEMIDE [Concomitant]
     Indication: PRODUCT USED FOR UNKNOWN INDICATION
     Route: 048
  11. ZOLPIDEM [Concomitant]
     Indication: PRODUCT USED FOR UNKNOWN INDICATION
     Route: 048
  12. SPECIAFOLDINE [Concomitant]
     Indication: PRODUCT USED FOR UNKNOWN INDICATION
     Route: 048
  13. LIPANOR [Concomitant]
     Indication: PRODUCT USED FOR UNKNOWN INDICATION
     Route: 048
     Dates: start: 20130425, end: 20130425

REACTIONS (1)
  - Renal failure [Not Recovered/Not Resolved]
